FAERS Safety Report 7987199-5 (Version None)
Quarter: 2011Q4

REPORT INFORMATION
  Report Type: 
  Country: None (occurrence: None)
  Receive Date: 20111216
  Receipt Date: 20111207
  Transmission Date: 20120403
  Serious: Yes (Other)
  Sender: FDA-Public Use
  Company Number: US-JNJFOC-20111203740

PATIENT
  Sex: Female

DRUGS (1)
  1. REMICADE [Suspect]
     Indication: COLITIS ULCERATIVE
     Route: 042
     Dates: start: 20100101

REACTIONS (6)
  - FATIGUE [None]
  - PANIC ATTACK [None]
  - ALOPECIA [None]
  - HYPERSOMNIA [None]
  - PRURITUS [None]
  - FORMICATION [None]
